FAERS Safety Report 6342167-4 (Version None)
Quarter: 2009Q3

REPORT INFORMATION
  Report Type: 
  Country: None (occurrence: None)
  Receive Date: 20090903
  Receipt Date: 20090903
  Transmission Date: 20100115
  Serious: Yes (Disabling)
  Sender: FDA-Public Use
  Company Number: None

PATIENT
  Sex: Female
  Weight: 127.0072 kg

DRUGS (1)
  1. ZICAM 1 SQURIT EACH NOSTRIL Q 4 H NOSE [Suspect]
     Indication: NASOPHARYNGITIS
     Dosage: 1 SQURIT EACH NOSTRIL Q4H NOSE FROM 1990 UNILL 2006 OR 2007
     Route: 045
     Dates: start: 19900101

REACTIONS (1)
  - ANOSMIA [None]
